FAERS Safety Report 9004537 (Version 1)
Quarter: 2012Q4

REPORT INFORMATION
  Report Type: Spontaneous
  Country: CN (occurrence: None)
  Receive Date: 20121227
  Receipt Date: 20121227
  Transmission Date: 20130627
  Serious: Yes (Other)
  Sender: FDA-Public Use
  Company Number: LEVE20120013

PATIENT
  Age: 8 Year
  Sex: Male

DRUGS (2)
  1. LEVETIRACETAM [Suspect]
     Dosage: 1 in 1 D
     Route: 048
     Dates: start: 2012, end: 2012
  2. LEVETIRACETAM [Suspect]
     Dosage: 1 in 1 D
     Route: 048
     Dates: start: 2012, end: 2012

REACTIONS (2)
  - Myoclonic epilepsy [None]
  - Condition aggravated [None]
